FAERS Safety Report 9631997 (Version 1)
Quarter: 2013Q4

REPORT INFORMATION
  Report Type: Spontaneous
  Country: US (occurrence: None)
  Receive Date: 20131017
  Receipt Date: 20131017
  Transmission Date: 20140711
  Serious: Yes (Disabling)
  Sender: FDA-Public Use
  Company Number: None

PATIENT
  Age: 43 Year
  Sex: Female
  Weight: 82.56 kg

DRUGS (1)
  1. LEVETIRACETAM [Suspect]
     Indication: GRAND MAL CONVULSION
     Route: 048
     Dates: start: 20131006, end: 20131016

REACTIONS (5)
  - Product substitution issue [None]
  - Product quality issue [None]
  - Headache [None]
  - Dizziness [None]
  - Visual impairment [None]
